FAERS Safety Report 17279853 (Version 1)
Quarter: 2020Q1

REPORT INFORMATION
  Report Type: Spontaneous
  Country: NL (occurrence: NL)
  Receive Date: 20200116
  Receipt Date: 20200116
  Transmission Date: 20200409
  Serious: Yes (Other)
  Sender: FDA-Public Use
  Company Number: NL-TEVA-2020-NL-1167584

PATIENT
  Sex: Female
  Weight: 67 kg

DRUGS (3)
  1. GREPID [Suspect]
     Active Substance: CLOPIDOGREL BESILATE
     Indication: PRODUCT USED FOR UNKNOWN INDICATION
     Dosage: 75 MILLIGRAM DAILY;
     Dates: start: 20180412
  2. TEVETEN PLUS [Suspect]
     Active Substance: EPROSARTAN\HYDROCHLOROTHIAZIDE
     Indication: HYPERTENSION
     Dosage: 1 DOSAGE FORMS DAILY;
  3. SIMVASTATINE [Suspect]
     Active Substance: SIMVASTATIN
     Indication: PRODUCT USED FOR UNKNOWN INDICATION
     Dosage: 40 MILLIGRAM DAILY;
     Dates: start: 20180411, end: 20180709

REACTIONS (6)
  - Hypokalaemia [Recovering/Resolving]
  - Pain in extremity [Recovering/Resolving]
  - Asthenia [Recovering/Resolving]
  - Abdominal pain upper [Recovering/Resolving]
  - Hyponatraemia [Recovering/Resolving]
  - Hepatitis [Recovering/Resolving]
